FAERS Safety Report 7048868-7 (Version None)
Quarter: 2010Q4

REPORT INFORMATION
  Report Type: 
  Country: None (occurrence: None)
  Receive Date: 20101012
  Receipt Date: 20100906
  Transmission Date: 20110411
  Serious: Yes (Congenital Anomaly)
  Sender: FDA-Public Use
  Company Number: 714957

PATIENT
  Age: 0 Day

DRUGS (5)
  1. THIOPENTAL SODIUM [Suspect]
     Dosage: TRANSPLACENTAL
     Route: 064
     Dates: start: 20100525, end: 20100525
  2. (MIDAZOLAM) [Suspect]
     Dosage: TRANSPLACENTAL
     Route: 064
     Dates: start: 20100525, end: 20100525
  3. (CURACIT) [Suspect]
     Dosage: TRANSPLACENTAL
     Route: 064
     Dates: start: 20100525, end: 20100525
  4. FENTANYL [Suspect]
     Dosage: TRANSPLACENTAL
     Route: 064
     Dates: start: 20100525, end: 20100525
  5. (SELEXID /00445302/) [Concomitant]

REACTIONS (4)
  - ANAESTHETIC COMPLICATION FOETAL [None]
  - APGAR SCORE LOW [None]
  - LISTLESS [None]
  - MATERNAL DRUGS AFFECTING FOETUS [None]
